FAERS Safety Report 8610218-X (Version None)
Quarter: 2012Q3

REPORT INFORMATION
  Report Type: 
  Country: None (occurrence: None)
  Receive Date: 20120822
  Receipt Date: 20120810
  Transmission Date: 20120928
  Serious: No
  Sender: FDA-Public Use
  Company Number: US-B.I. PHARMACEUTICALS,INC./RIDGEFIELD-2012-BP-13806BP

PATIENT
  Sex: Male

DRUGS (6)
  1. ALPHAGAN [Concomitant]
     Indication: GLAUCOMA
     Route: 031
  2. PRADAXA [Suspect]
     Indication: ATRIAL FIBRILLATION
     Dosage: 300 MG
     Route: 048
     Dates: start: 20120115
  3. ALPHAGAN [Concomitant]
     Indication: EYE DISORDER
  4. DIOVAN HCT [Concomitant]
     Indication: HYPERTENSION
     Route: 048
  5. ADVIL [Concomitant]
     Indication: PAIN
     Dosage: 25 NR
     Route: 048
  6. TOPROL-XL [Concomitant]
     Indication: HEART RATE ABNORMAL
     Dosage: 25 MG

REACTIONS (5)
  - MUSCULOSKELETAL PAIN [None]
  - MOVEMENT DISORDER [None]
  - ARTHRALGIA [None]
  - JOINT SWELLING [None]
  - ARTHRITIS [None]
